FAERS Safety Report 9702235 (Version 1)
Quarter: 2013Q4

REPORT INFORMATION
  Report Type: Spontaneous
  Country: US (occurrence: None)
  Receive Date: 20131119
  Receipt Date: 20131119
  Transmission Date: 20140711
  Serious: Yes (Hospitalization, Other)
  Sender: FDA-Public Use
  Company Number: 2013US002824

PATIENT
  Age: 67 Year
  Sex: Female
  Weight: 52 kg

DRUGS (22)
  1. PONATINIB (AP24534) [Suspect]
     Indication: CHRONIC MYELOID LEUKAEMIA
     Route: 048
     Dates: start: 20090729, end: 20130115
  2. PONATINIB (AP24534) [Suspect]
     Indication: HAEMATOLOGICAL MALIGNANCY
     Route: 048
     Dates: start: 20090729, end: 20130115
  3. ALBUTEROL (ALBUTEROL) [Concomitant]
  4. ASPIRIN (ASPIRIN) [Concomitant]
  5. B12 (CYANOCOBALMIN) [Concomitant]
  6. BENADRYL (DIPHENHYDRAMINE HYDRCHLORIDE) [Concomitant]
  7. CALCIUM AND VITAMIN D (CALCIUM, COLECALCIFEROL) [Concomitant]
  8. CRESTOR (ROSUVASTATIN CALCIUM) [Concomitant]
  9. DILTIAZEM (DILTIAZEM HYDROCHLORIDE) [Concomitant]
  10. LEVOTHYROXIN (LEVOTHYROXIN SODIUM) [Concomitant]
  11. LISINOPRIL (LISINOPRIL DIHYDRATE) [Concomitant]
  12. MAGNESIUM (MAGNESIUM) [Concomitant]
  13. MIRALAX [Concomitant]
  14. MULTI-VIT(VITAMIN NOS) [Concomitant]
  15. OMEGA 3 SELECT (FISH OIL) [Concomitant]
  16. PEPCID (FAMOTIDINE) [Concomitant]
  17. PLAVIX (CLOPIDOGREL BISULFATE) [Concomitant]
  18. SPIRIVA (TIOTROPIUM BROMIDE) [Concomitant]
  19. SYMBICORT [Concomitant]
  20. TEMAZEPAM (TEMAZEPAM) [Concomitant]
  21. VIT C [Concomitant]
  22. ZYRTEC (CETIRAZINE HYDROCHLORIDE) [Concomitant]

REACTIONS (3)
  - Skin ulcer [None]
  - Peripheral arterial occlusive disease [None]
  - Impaired healing [None]
